FAERS Safety Report 8067777-8 (Version None)
Quarter: 2012Q1

REPORT INFORMATION
  Report Type: 
  Country: None (occurrence: None)
  Receive Date: 20120124
  Receipt Date: 20120116
  Transmission Date: 20120608
  Serious: Yes (Other)
  Sender: FDA-Public Use
  Company Number: US-ASTRAZENECA-2012SE03168

PATIENT
  Age: 57 Year
  Sex: Female

DRUGS (3)
  1. SEROQUEL [Suspect]
     Indication: MOOD SWINGS
     Route: 048
  2. SEROQUEL [Suspect]
     Dosage: CUTS 100 MG TABLET INTO HALF TABLET
     Route: 048
  3. PSYCHIATRIC MEDICATION [Concomitant]
     Dates: start: 20050101

REACTIONS (3)
  - HEADACHE [None]
  - HAEMORRHAGE [None]
  - WRONG TECHNIQUE IN DRUG USAGE PROCESS [None]
